FAERS Safety Report 23073033 (Version 1)
Quarter: 2023Q4

REPORT INFORMATION
  Report Type: Report from Study
  Country: US (occurrence: US)
  Receive Date: 20231017
  Receipt Date: 20231017
  Transmission Date: 20240110
  Serious: Yes (Hospitalization, Other)
  Sender: FDA-Public Use
  Company Number: US-TAKEDA-2023TUS098992

PATIENT
  Sex: Male
  Weight: 113.38 kg

DRUGS (12)
  1. HUMAN IMMUNOGLOBULIN G [Suspect]
     Active Substance: HUMAN IMMUNOGLOBULIN G
     Indication: Heart transplant rejection
     Dosage: 750 MILLIGRAM/KILOGRAM, BID
     Route: 042
     Dates: start: 20230726
  2. MAGNESIUM OXIDE [Concomitant]
     Active Substance: MAGNESIUM OXIDE
  3. PAROXETINE [Concomitant]
     Active Substance: PAROXETINE
  4. AMLODIPINE BESYLATE [Concomitant]
     Active Substance: AMLODIPINE BESYLATE
  5. TRULICITY [Concomitant]
     Active Substance: DULAGLUTIDE
  6. POTASSIUM CHLORIDE [Concomitant]
     Active Substance: POTASSIUM CHLORIDE
  7. PRAVASTATIN SODIUM [Concomitant]
     Active Substance: PRAVASTATIN SODIUM
  8. LOSARTAN POTASSIUM [Concomitant]
     Active Substance: LOSARTAN POTASSIUM
  9. VITAMIN D [Concomitant]
     Active Substance: VITAMIN D NOS
  10. ASPIRIN [Concomitant]
     Active Substance: ASPIRIN
  11. JARDIANCE [Concomitant]
     Active Substance: EMPAGLIFLOZIN
  12. PANTOPRAZOLE SODIUM [Concomitant]
     Active Substance: PANTOPRAZOLE SODIUM

REACTIONS (3)
  - Catheterisation cardiac [Unknown]
  - Product use in unapproved indication [Unknown]
  - No adverse event [Unknown]
